FAERS Safety Report 8364424-2 (Version None)
Quarter: 2012Q2

REPORT INFORMATION
  Report Type: 
  Country: None (occurrence: None)
  Receive Date: 20120514
  Receipt Date: 20120427
  Transmission Date: 20120825
  Serious: Yes (Death, Hospitalization)
  Sender: FDA-Public Use
  Company Number: US-2011-3438

PATIENT
  Age: 57 Year
  Sex: Male

DRUGS (16)
  1. CISPLATIN [Suspect]
     Indication: LUNG CANCER METASTATIC
     Dosage: 155 MG IV
     Route: 042
     Dates: start: 20110629, end: 20111102
  2. DIOVAN [Concomitant]
  3. SOLU-MEDROL [Concomitant]
  4. LEVAQUIN [Concomitant]
  5. DECADRON [Concomitant]
  6. ALBUTEROL [Concomitant]
  7. VINORELBINE [Suspect]
     Indication: LUNG CANCER METASTATIC
     Dosage: 49 MG IV
     Route: 042
     Dates: start: 20110625, end: 20111109
  8. CETUXIMAB [Suspect]
     Indication: LUNG CANCER METASTATIC
     Dosage: 780 MG IV
     Route: 042
     Dates: start: 20110629, end: 20111116
  9. TESSALON [Concomitant]
  10. PHENERGAN EXPECTORANT W/ CODEINE [Concomitant]
  11. TUSSI-ORGANIDIN [Concomitant]
  12. ISOPROTERENOL HCL [Concomitant]
  13. COMPAZINE [Concomitant]
  14. RANITIDINE [Concomitant]
  15. ZOFRAN [Concomitant]
  16. BENZONATATE [Concomitant]

REACTIONS (6)
  - RENAL FAILURE ACUTE [None]
  - RESPIRATORY DISTRESS [None]
  - PNEUMONIA [None]
  - LUNG NEOPLASM MALIGNANT [None]
  - NEOPLASM PROGRESSION [None]
  - BREAST CANCER METASTATIC [None]
